FAERS Safety Report 13847184 (Version 1)
Quarter: 2017Q3

REPORT INFORMATION
  Report Type: Spontaneous
  Country: IT (occurrence: IT)
  Receive Date: 20170808
  Receipt Date: 20170808
  Transmission Date: 20171127
  Serious: Yes (Hospitalization)
  Sender: FDA-Public Use
  Company Number: IT-MYLANLABS-2017M1047801

PATIENT

DRUGS (2)
  1. AMOXICILLIN/CLAVULANIC ACID [Suspect]
     Active Substance: AMOXICILLIN\CLAVULANIC ACID
     Indication: DENTAL OPERATION
     Dosage: 2 DF, TOTAL
     Route: 048
     Dates: start: 20160926, end: 20160926
  2. KETOPROFEN. [Suspect]
     Active Substance: KETOPROFEN
     Indication: DENTAL OPERATION
     Dosage: 2 DF, TOTAL
     Route: 048
     Dates: start: 20160929, end: 20160929

REACTIONS (2)
  - Eyelid oedema [Recovered/Resolved]
  - Dyspnoea [Recovered/Resolved]

NARRATIVE: CASE EVENT DATE: 20160929
